FAERS Safety Report 11952809 (Version 2)
Quarter: 2016Q1

REPORT INFORMATION
  Report Type: Report from Study
  Country: US (occurrence: US)
  Receive Date: 20160126
  Receipt Date: 20160126
  Transmission Date: 20160526
  Serious: No
  Sender: FDA-Public Use
  Company Number: US-ABBVIE-15K-163-1356237-00

PATIENT
  Age: 52 Year
  Sex: Female

DRUGS (1)
  1. HUMIRA [Suspect]
     Active Substance: ADALIMUMAB
     Indication: RHEUMATOID ARTHRITIS
     Route: 058
     Dates: start: 20150205

REACTIONS (8)
  - Dizziness [Unknown]
  - Injection site pain [Unknown]
  - Influenza like illness [Unknown]
  - Abdominal pain upper [Unknown]
  - Headache [Unknown]
  - Cough [Unknown]
  - Chills [Unknown]
  - Myalgia [Unknown]

NARRATIVE: CASE EVENT DATE: 20150205
